FAERS Safety Report 18599236 (Version 4)
Quarter: 2021Q2

REPORT INFORMATION
  Report Type: Spontaneous
  Country: US (occurrence: US)
  Receive Date: 20201210
  Receipt Date: 20210602
  Transmission Date: 20210717
  Serious: Yes (Hospitalization, Other)
  Sender: FDA-Public Use
  Company Number: US-GLOBAL BLOOD THERAPEUTICS INC-US-GBT-20-03969

PATIENT
  Age: 16 Year
  Sex: Female

DRUGS (1)
  1. OXBRYTA [Suspect]
     Active Substance: VOXELOTOR
     Indication: SICKLE CELL DISEASE
     Route: 048
     Dates: start: 2021

REACTIONS (6)
  - Product dose omission issue [Unknown]
  - Pharyngitis [Unknown]
  - Therapy cessation [Unknown]
  - Sickle cell anaemia with crisis [Unknown]
  - Pain [Recovered/Resolved]
  - Oral surgery [Unknown]

NARRATIVE: CASE EVENT DATE: 2020
